FAERS Safety Report 23027471 (Version 1)
Quarter: 2023Q4

REPORT INFORMATION
  Report Type: Report from Study
  Country: EG (occurrence: EG)
  Receive Date: 20231004
  Receipt Date: 20231004
  Transmission Date: 20240109
  Serious: Yes (Other)
  Sender: FDA-Public Use
  Company Number: EG-002147023-NVSC2023EG209757

PATIENT
  Sex: Female

DRUGS (2)
  1. COSENTYX [Suspect]
     Active Substance: SECUKINUMAB
     Indication: Ankylosing spondylitis
     Dosage: 150 MG, QW (LOADING DOSE FOR 4 WEEKS)
     Route: 058
  2. COSENTYX [Suspect]
     Active Substance: SECUKINUMAB
     Dosage: 150 MG, QMO (MAINTENANCE DOSE OF 1 PRE-FILLED PEN)
     Route: 058

REACTIONS (6)
  - Laboratory test abnormal [Unknown]
  - Alopecia [Unknown]
  - Renal disorder [Unknown]
  - Liver disorder [Unknown]
  - Cardiac disorder [Unknown]
  - Drug ineffective [Unknown]
